FAERS Safety Report 4627760-9 (Version None)
Quarter: 2005Q2

REPORT INFORMATION
  Report Type: 
  Country: None (occurrence: None)
  Receive Date: 20050401
  Receipt Date: 20050321
  Transmission Date: 20051028
  Serious: Yes (Hospitalization, Other)
  Sender: FDA-Public Use
  Company Number: 2004-00829

PATIENT
  Age: 54 Year
  Sex: Male

DRUGS (1)
  1. VELCADE [Suspect]
     Indication: MULTIPLE MYELOMA
     Dosage: INTRAVENOUS
     Route: 042
     Dates: start: 20040915

REACTIONS (5)
  - EAR PAIN [None]
  - HYPOACUSIS [None]
  - INFLUENZA LIKE ILLNESS [None]
  - OSTEOMA [None]
  - OTITIS MEDIA ACUTE [None]
